FAERS Safety Report 7469207-3 (Version None)
Quarter: 2011Q2

REPORT INFORMATION
  Report Type: 
  Country: None (occurrence: None)
  Receive Date: 20110506
  Receipt Date: 20110506
  Transmission Date: 20111010
  Serious: Yes (Other)
  Sender: FDA-Public Use
  Company Number: None

PATIENT
  Sex: Female
  Weight: 79.3795 kg

DRUGS (1)
  1. KENALOG [Suspect]
     Indication: OEDEMA PERIPHERAL
     Dosage: 1 INJECTION
     Dates: start: 20110131

REACTIONS (7)
  - MOOD SWINGS [None]
  - PANIC ATTACK [None]
  - DEPRESSION [None]
  - VAGINAL HAEMORRHAGE [None]
  - ARTHRALGIA [None]
  - LYMPHOEDEMA [None]
  - MENORRHAGIA [None]
